FAERS Safety Report 13973247 (Version 1)
Quarter: 2017Q3

REPORT INFORMATION
  Report Type: Spontaneous
  Country: US (occurrence: None)
  Receive Date: 20170915
  Receipt Date: 20170915
  Transmission Date: 20171128
  Serious: Yes (Hospitalization)
  Sender: FDA-Public Use
  Company Number: None

PATIENT
  Age: 56 Year
  Sex: Female

DRUGS (15)
  1. CRUSH VIT C [Concomitant]
  2. ACTEMRA [Suspect]
     Active Substance: TOCILIZUMAB
     Indication: RHEUMATOID ARTHRITIS
     Dosage: 162MG/0.9ML WEEKLY SUB-Q
     Route: 058
     Dates: start: 20170817
  3. BUSPIRONE [Concomitant]
     Active Substance: BUSPIRONE HYDROCHLORIDE
  4. METHOTREXATE. [Concomitant]
     Active Substance: METHOTREXATE
  5. PREDNISONE. [Concomitant]
     Active Substance: PREDNISONE
  6. VALSARTAN. [Concomitant]
     Active Substance: VALSARTAN
  7. VALTREX [Concomitant]
     Active Substance: VALACYCLOVIR HYDROCHLORIDE
  8. ZOLPIDEM [Concomitant]
     Active Substance: ZOLPIDEM\ZOLPIDEM TARTRATE
  9. FOLIC ACID. [Concomitant]
     Active Substance: FOLIC ACID
  10. RED YEAST [Concomitant]
     Active Substance: YEAST
  11. RELPAX [Concomitant]
     Active Substance: ELETRIPTAN HYDROBROMIDE
  12. AMLODIPINE [Concomitant]
     Active Substance: AMLODIPINE BESYLATE
  13. DULOXETINE. [Concomitant]
     Active Substance: DULOXETINE
  14. IBUPROFEN. [Concomitant]
     Active Substance: IBUPROFEN
  15. THERATEARS [Concomitant]
     Active Substance: CARBOXYMETHYLCELLULOSE SODIUM

REACTIONS (1)
  - Surgery [None]

NARRATIVE: CASE EVENT DATE: 2017
